FAERS Safety Report 5185348-8 (Version None)
Quarter: 2006Q4

REPORT INFORMATION
  Report Type: 
  Country: None (occurrence: None)
  Receive Date: 20061212
  Receipt Date: 20061204
  Transmission Date: 20070319
  Serious: Yes (Hospitalization)
  Sender: FDA-Public Use
  Company Number: 2006PV023597

PATIENT
  Age: 57 Year
  Sex: Female
  Weight: 90.7194 kg

DRUGS (7)
  1. BYETTA [Suspect]
     Indication: DIABETES MELLITUS NON-INSULIN-DEPENDENT
     Dosage: 5 MCG; BID; SC
     Route: 058
     Dates: start: 20060827
  2. GLIPIZIDE [Concomitant]
  3. GLUCOPHAGE [Concomitant]
  4. ACTOS [Concomitant]
  5. METOPROLOL SUCCINATE [Concomitant]
  6. ISOSORBIDE [Concomitant]
  7. XANAX [Concomitant]

REACTIONS (13)
  - BLOOD GLUCOSE INCREASED [None]
  - DYSURIA [None]
  - FALL [None]
  - FUNGAL INFECTION [None]
  - INCORRECT DOSE ADMINISTERED [None]
  - INSOMNIA [None]
  - NAUSEA [None]
  - PYREXIA [None]
  - THIRST [None]
  - TOOTH ABSCESS [None]
  - UPPER LIMB FRACTURE [None]
  - VOMITING [None]
  - WEIGHT DECREASED [None]
